FAERS Safety Report 18260081 (Version 1)
Quarter: 2020Q3

REPORT INFORMATION
  Report Type: Spontaneous
  Country: US (occurrence: US)
  Receive Date: 20200913
  Receipt Date: 20200913
  Transmission Date: 20201103
  Serious: Yes (Other)
  Sender: FDA-Public Use
  Company Number: US-STRIDES ARCOLAB LIMITED-2019SP009914

PATIENT
  Age: 60 Year
  Sex: Male

DRUGS (2)
  1. TACROLIMUS. [Suspect]
     Active Substance: TACROLIMUS
     Dosage: 1 MG PER DAY
     Route: 065
  2. TACROLIMUS. [Suspect]
     Active Substance: TACROLIMUS
     Indication: LIVER TRANSPLANT
     Dosage: 2 MG PER DAY
     Route: 065

REACTIONS (6)
  - Arthralgia [Recovered/Resolved]
  - Joint warmth [Recovered/Resolved]
  - Tenderness [Recovered/Resolved]
  - Swelling [Recovered/Resolved]
  - Gouty arthritis [Recovered/Resolved]
  - Erythema [Recovered/Resolved]
